FAERS Safety Report 7295574-X (Version None)
Quarter: 2011Q1

REPORT INFORMATION
  Report Type: 
  Country: None (occurrence: None)
  Receive Date: 20110216
  Receipt Date: 20101216
  Transmission Date: 20110831
  Serious: No
  Sender: FDA-Public Use
  Company Number: US-ABBOTT-10P-163-0692731-00

PATIENT
  Sex: Male
  Weight: 88.984 kg

DRUGS (9)
  1. BYETTA [Concomitant]
     Indication: DIABETES MELLITUS
  2. SIMCOR [Suspect]
     Indication: LOW DENSITY LIPOPROTEIN INCREASED
  3. CIPRO [Suspect]
     Indication: PROSTATE INFECTION
     Dates: start: 20101201
  4. LISINOPRIL [Concomitant]
     Indication: HYPERTENSION
  5. TYLENOL [Concomitant]
     Indication: PRODUCT USED FOR UNKNOWN INDICATION
  6. SIMCOR [Suspect]
     Indication: HIGH DENSITY LIPOPROTEIN DECREASED
     Dosage: 500/20 MG
     Dates: start: 20080101, end: 20101201
  7. SIMCOR [Suspect]
     Indication: LOW DENSITY LIPOPROTEIN INCREASED
  8. TESTIM [Suspect]
     Indication: PRODUCT USED FOR UNKNOWN INDICATION
     Dates: end: 20100701
  9. SIMCOR [Suspect]
     Indication: HIGH DENSITY LIPOPROTEIN DECREASED
     Dosage: 100/20
     Dates: start: 20101201

REACTIONS (5)
  - FLUSHING [None]
  - PROSTATIC SPECIFIC ANTIGEN INCREASED [None]
  - MYALGIA [None]
  - PROSTATE INFECTION [None]
  - GASTROINTESTINAL DISORDER [None]
